FAERS Safety Report 10239247 (Version 1)
Quarter: 2014Q2

REPORT INFORMATION
  Report Type: Report from Study
  Country: US (occurrence: US)
  Receive Date: 20140616
  Receipt Date: 20140616
  Transmission Date: 20141212
  Serious: Yes (Disabling, Other)
  Sender: FDA-Public Use
  Company Number: US-GILEAD-2014-0105145

PATIENT
  Sex: Female

DRUGS (1)
  1. RANOLAZINE [Suspect]
     Indication: ANGINA PECTORIS
     Dosage: 1000 MG, UNK
     Route: 065

REACTIONS (2)
  - Blindness [Unknown]
  - Coronary artery bypass [Unknown]
